FAERS Safety Report 11843726 (Version 1)
Quarter: 2015Q4

REPORT INFORMATION
  Report Type: Spontaneous
  Country: US (occurrence: US)
  Receive Date: 20151217
  Receipt Date: 20151217
  Transmission Date: 20160305
  Serious: No
  Sender: FDA-Public Use
  Company Number: US-HOSPIRA-2652871

PATIENT
  Age: 59 Year
  Sex: Male

DRUGS (2)
  1. NAFCILLIN [Suspect]
     Active Substance: NAFCILLIN\NAFCILLIN SODIUM
     Indication: PRODUCT USED FOR UNKNOWN INDICATION
     Route: 041
     Dates: start: 20141123
  2. CIPROFLOXACIN. [Suspect]
     Active Substance: CIPROFLOXACIN
     Indication: PRODUCT USED FOR UNKNOWN INDICATION
     Route: 041
     Dates: start: 20141123

REACTIONS (3)
  - Poor quality drug administered [Recovered/Resolved]
  - No adverse event [None]
  - Product deposit [Recovered/Resolved]

NARRATIVE: CASE EVENT DATE: 20141123
